FAERS Safety Report 14826471 (Version 1)
Quarter: 2018Q2

REPORT INFORMATION
  Report Type: Report from Study
  Country: IE (occurrence: IE)
  Receive Date: 20180430
  Receipt Date: 20180430
  Transmission Date: 20180711
  Serious: Yes (Other)
  Sender: FDA-Public Use
  Company Number: PHHY2018IE055850

PATIENT
  Age: 35 Year
  Sex: Female

DRUGS (2)
  1. COSENTYX [Suspect]
     Active Substance: SECUKINUMAB
     Indication: PSORIASIS
  2. COSENTYX [Suspect]
     Active Substance: SECUKINUMAB
     Indication: PSORIATIC ARTHROPATHY
     Dosage: 300 MG, UNK
     Route: 058
     Dates: start: 20180219

REACTIONS (13)
  - Pharyngitis streptococcal [Recovered/Resolved]
  - Psoriasis [Unknown]
  - Furuncle [Unknown]
  - Folliculitis [Recovering/Resolving]
  - Lymph node pain [Unknown]
  - Oral disorder [Recovering/Resolving]
  - Rash [Unknown]
  - Gingival pain [Unknown]
  - Heart rate increased [Recovering/Resolving]
  - Malaise [Recovering/Resolving]
  - Glossodynia [Unknown]
  - Ankylosing spondylitis [Unknown]
  - Chest discomfort [Recovered/Resolved]

NARRATIVE: CASE EVENT DATE: 20180316
